FAERS Safety Report 15844723 (Version 1)
Quarter: 2019Q1

REPORT INFORMATION
  Report Type: Report from Study
  Country: CA (occurrence: CA)
  Receive Date: 20190118
  Receipt Date: 20190118
  Transmission Date: 20190417
  Serious: Yes (Hospitalization)
  Sender: FDA-Public Use
  Company Number: CA-PFIZER INC-2019026898

PATIENT
  Age: 51 Year
  Sex: Female

DRUGS (2)
  1. METHOTREXATE SODIUM. [Suspect]
     Active Substance: METHOTREXATE SODIUM
     Indication: PRODUCT USED FOR UNKNOWN INDICATION
     Dosage: UNK
     Route: 065
  2. REMICADE [Suspect]
     Active Substance: INFLIXIMAB
     Indication: CROHN^S DISEASE
     Dosage: 3 MG/KG, EVERY 4 WEEKS
     Route: 042

REACTIONS (6)
  - Product use issue [Unknown]
  - Pulmonary sepsis [Unknown]
  - Renal injury [Unknown]
  - Off label use [Unknown]
  - Hyponatraemia [Unknown]
  - Atrial fibrillation [Unknown]
